FAERS Safety Report 21495143 (Version 1)
Quarter: 2022Q4

REPORT INFORMATION
  Report Type: Report from Study
  Country: US (occurrence: US)
  Receive Date: 20221022
  Receipt Date: 20221022
  Transmission Date: 20230113
  Serious: No
  Sender: FDA-Public Use
  Company Number: US-ABBVIE-4166938

PATIENT
  Age: 50 Year
  Sex: Male

DRUGS (3)
  1. SKYRIZI [Suspect]
     Active Substance: RISANKIZUMAB-RZAA
     Indication: Psoriasis
     Dosage: WEEK 4
     Route: 058
  2. SKYRIZI [Suspect]
     Active Substance: RISANKIZUMAB-RZAA
     Dosage: WEEK 0
     Route: 058
     Dates: start: 20210917
  3. SKYRIZI [Suspect]
     Active Substance: RISANKIZUMAB-RZAA
     Dosage: 150MG WEEK 0, WEEK 4 AND EVERY 12 WEEKS THEREAFTER
     Route: 058

REACTIONS (5)
  - Nasopharyngitis [Recovered/Resolved]
  - Dry throat [Unknown]
  - General physical condition abnormal [Recovered/Resolved]
  - Cough [Unknown]
  - Lethargy [Unknown]

NARRATIVE: CASE EVENT DATE: 20220901
